FAERS Safety Report 8119122-7 (Version None)
Quarter: 2012Q1

REPORT INFORMATION
  Report Type: 
  Country: None (occurrence: None)
  Receive Date: 20120207
  Receipt Date: 20120207
  Transmission Date: 20120608
  Serious: Yes (Other)
  Sender: FDA-Public Use
  Company Number: None

PATIENT
  Sex: Female

DRUGS (2)
  1. GADOLINIUM-BASED CONTRAST AGENT [Suspect]
     Indication: BACK DISORDER
     Dates: start: 20000101, end: 20090601
  2. GADOLINIUM-BASED CONTRAST AGENT [Suspect]
     Indication: SURGERY
     Dates: start: 20000101, end: 20090601

REACTIONS (10)
  - BURNING SENSATION [None]
  - VISION BLURRED [None]
  - DYSPEPSIA [None]
  - SPEECH DISORDER [None]
  - SALIVARY HYPERSECRETION [None]
  - OCULAR ICTERUS [None]
  - JOINT RANGE OF MOTION DECREASED [None]
  - TRISMUS [None]
  - FEELING COLD [None]
  - HAND DEFORMITY [None]
